FAERS Safety Report 8223521-2 (Version None)
Quarter: 2012Q1

REPORT INFORMATION
  Report Type: 
  Country: None (occurrence: None)
  Receive Date: 20120321
  Receipt Date: 20120315
  Transmission Date: 20120608
  Serious: No
  Sender: FDA-Public Use
  Company Number: US-PFIZER INC-2012068870

PATIENT
  Sex: Female
  Weight: 72.562 kg

DRUGS (11)
  1. NICOTROL [Suspect]
     Indication: SMOKING CESSATION THERAPY
     Dosage: UNK
  2. NICOTINE [Concomitant]
     Dosage: UNK
  3. MELOXICAM [Concomitant]
     Indication: ARTHRITIS
     Dosage: 7.5 MG, 2X/DAY
  4. METHOCARBAMOL [Concomitant]
     Indication: FIBROMYALGIA
  5. LEVOTHYROXINE [Concomitant]
     Indication: MENTAL DISORDER
     Dosage: 75 MG, DAILY
  6. MELOXICAM [Concomitant]
     Indication: FIBROMYALGIA
  7. HYDROCODONE [Concomitant]
     Indication: FIBROMYALGIA
  8. SEROQUEL [Concomitant]
     Indication: MENTAL DISORDER
     Dosage: 300 MG, DAILY
  9. METHOCARBAMOL [Concomitant]
     Indication: ARTHRITIS
     Dosage: 500 MG, 3X/DAY
  10. CYMBALTA [Concomitant]
     Indication: MENTAL DISORDER
     Dosage: 90 MG, DAILY
  11. HYDROCODONE [Concomitant]
     Indication: ARTHRITIS
     Dosage: 7.5 MG, 2X/DAY

REACTIONS (2)
  - DRUG INEFFECTIVE [None]
  - DYSGEUSIA [None]
